FAERS Safety Report 7788064-9 (Version None)
Quarter: 2011Q3

REPORT INFORMATION
  Report Type: 
  Country: None (occurrence: None)
  Receive Date: 20110930
  Receipt Date: 20110919
  Transmission Date: 20111222
  Serious: Yes (Hospitalization, Other)
  Sender: FDA-Public Use
  Company Number: US-ELI_LILLY_AND_COMPANY-US201108003251

PATIENT
  Sex: Female
  Weight: 79.1 kg

DRUGS (23)
  1. GABAPENTIN [Concomitant]
     Dosage: 100 MG, QD
     Route: 048
  2. EVENING PRIMROSE OIL [Concomitant]
     Dosage: 2000 MG, BID
     Route: 048
  3. DIGOXIN [Concomitant]
     Dosage: 0.125 MG, QD
     Route: 048
  4. HUMALOG [Suspect]
     Dosage: UNK, OTHER
     Dates: start: 19640101, end: 20110701
  5. FUROSEMIDE [Concomitant]
     Dosage: 20 MG, BID
  6. NITROGLYCERIN [Concomitant]
     Indication: CHEST PAIN
     Dosage: 0.4 MG, PRN
     Route: 060
  7. HUMULIN N [Suspect]
     Dosage: 28 U, EACH MORNING
     Dates: start: 19640101
  8. RAMIPRIL [Concomitant]
     Dosage: 5 MG, QD
     Route: 048
  9. HUMULIN N [Suspect]
     Dosage: 37 U, EACH EVENING
     Dates: start: 19640101
  10. WARFARIN SODIUM [Concomitant]
     Dosage: 2.5 MG, UNK
  11. HUMULIN N [Suspect]
     Indication: DIABETES MELLITUS
     Dosage: 28 U, EACH MORNING
  12. HUMALOG [Suspect]
     Indication: DIABETES MELLITUS
     Dosage: UNK UNK, OTHER
     Dates: end: 20110701
  13. ATENOLOL [Concomitant]
     Dosage: 50 MG, QD
     Route: 048
  14. SALSALATE [Concomitant]
     Dosage: 1500 MG, BID
     Route: 048
  15. HUMULIN N [Suspect]
     Dosage: 37 U, EACH EVENING
     Dates: start: 19640101
  16. HUMULIN N [Suspect]
     Dosage: 15 U, BID
     Dates: start: 20110807
  17. SERTRALINE HYDROCHLORIDE [Concomitant]
     Dosage: 100 MG, UNK
     Route: 048
  18. VITAMIN D [Concomitant]
     Dosage: 50000 U, OTHER
     Route: 048
  19. AMLODIPINE BESYLATE [Concomitant]
     Dosage: 5 MG, QD
     Route: 048
  20. PLAVIX [Concomitant]
     Dosage: 75 MG, QD
     Route: 048
  21. LIPITOR [Concomitant]
     Dosage: 10 MG, QD
     Route: 048
  22. HUMULIN N [Suspect]
  23. NASONEX [Concomitant]
     Dosage: UNK, BID

REACTIONS (15)
  - MYOCARDIAL INFARCTION [None]
  - BLOOD GLUCOSE INCREASED [None]
  - DIABETIC RETINOPATHY [None]
  - ARTHRALGIA [None]
  - CHEST PAIN [None]
  - MALAISE [None]
  - FALL [None]
  - SPINAL COLUMN STENOSIS [None]
  - THERAPEUTIC RESPONSE INCREASED [None]
  - THINKING ABNORMAL [None]
  - BLOOD GLUCOSE DECREASED [None]
  - BACK DISORDER [None]
  - GAIT DISTURBANCE [None]
  - SCIATICA [None]
  - INCORRECT DOSE ADMINISTERED [None]
